FAERS Safety Report 8059636-1 (Version None)
Quarter: 2012Q1

REPORT INFORMATION
  Report Type: 
  Country: None (occurrence: None)
  Receive Date: 20120120
  Receipt Date: 20120106
  Transmission Date: 20120608
  Serious: Yes (Hospitalization, Other)
  Sender: FDA-Public Use
  Company Number: PHHY2012JP002047

PATIENT
  Sex: Female

DRUGS (12)
  1. DISOPYRAMIDE PHOSPHATE [Concomitant]
     Dosage: 300 MG, UNK
     Route: 048
  2. LIPITOR [Concomitant]
     Dosage: 10 MG, UNK
     Route: 048
     Dates: start: 20101202
  3. CARVEDILOL [Concomitant]
     Dosage: 2.5 MG, UNK
     Route: 048
     Dates: start: 20100626
  4. ALISKIREN [Suspect]
     Dosage: 150 MG, DAILY
     Route: 048
     Dates: start: 20110112, end: 20110208
  5. ADALAT - SLOW RELEASE [Concomitant]
     Indication: HYPERTENSION
     Dosage: 60 MG, UNK
     Dates: start: 20061111
  6. ACECOL [Concomitant]
     Indication: HYPERTENSION
     Dosage: 2 MG, UNK
     Route: 048
     Dates: start: 20061111
  7. CARVEDILOL [Concomitant]
     Dosage: 5 MG, UNK
     Route: 048
  8. DOXAZOSIN MESYLATE [Concomitant]
     Indication: HYPERTENSION
     Dosage: 2 MG, UNK
     Route: 048
     Dates: start: 20100626
  9. OLMESARTAN MEDOXOMIL [Concomitant]
     Indication: HYPERTENSION
     Dosage: 20 MG, UNK
     Route: 048
     Dates: start: 20061111
  10. WARFARIN SODIUM [Concomitant]
     Dosage: 3.5 MG, UNK
     Route: 048
     Dates: start: 20101112
  11. ALISKIREN [Suspect]
     Indication: HYPERTENSION
     Dosage: 300 MG, UNK
     Route: 048
     Dates: start: 20100310, end: 20101016
  12. ALISKIREN [Suspect]
     Dosage: 300 MG, DAILY
     Route: 048
     Dates: start: 20110209

REACTIONS (9)
  - BLOOD PRESSURE DIASTOLIC DECREASED [None]
  - PARESIS [None]
  - HEMIPARESIS [None]
  - ATRIAL FIBRILLATION [None]
  - DYSLALIA [None]
  - BLOOD POTASSIUM DECREASED [None]
  - HAEMATOCRIT DECREASED [None]
  - HAEMOGLOBIN DECREASED [None]
  - CEREBRAL INFARCTION [None]
